FAERS Safety Report 12683165 (Version 1)
Quarter: 2016Q3

REPORT INFORMATION
  Report Type: Spontaneous
  Country: US (occurrence: None)
  Receive Date: 20160824
  Receipt Date: 20160824
  Transmission Date: 20161109
  Serious: No
  Sender: FDA-Public Use
  Company Number: None

PATIENT

DRUGS (1)
  1. DOCUSATE-SENNA 50-8.6MG [Suspect]
     Active Substance: DOCUSATE SODIUM\SENNOSIDES

REACTIONS (2)
  - Drug prescribing error [None]
  - Transcription medication error [None]
